FAERS Safety Report 9140511 (Version 1)
Quarter: 2013Q1

REPORT INFORMATION
  Report Type: Spontaneous
  Country: US (occurrence: US)
  Receive Date: 20130305
  Receipt Date: 20130305
  Transmission Date: 20140127
  Serious: Yes (Other)
  Sender: FDA-Public Use
  Company Number: US-BAYER-2013-026983

PATIENT
  Sex: Female

DRUGS (1)
  1. MIDOL [Suspect]
     Indication: MENORRHAGIA

REACTIONS (5)
  - Syncope [None]
  - Hypokinesia [None]
  - Feeling abnormal [None]
  - Sleep disorder [None]
  - Hypersensitivity [None]
